FAERS Safety Report 9501627 (Version 1)
Quarter: 2013Q3

REPORT INFORMATION
  Report Type: Spontaneous
  Country: FR (occurrence: FR)
  Receive Date: 20130905
  Receipt Date: 20130905
  Transmission Date: 20140515
  Serious: Yes (Other)
  Sender: FDA-Public Use
  Company Number: FR-TEVA-429587ISR

PATIENT
  Age: 35 Year
  Sex: Female

DRUGS (3)
  1. COPAXONE [Suspect]
     Indication: MULTIPLE SCLEROSIS
     Dosage: AUTOJECT WITH DEPTH 7/8 MM
     Route: 058
     Dates: start: 20110701
  2. LYRICA 300 MG [Concomitant]
  3. UNSPECIFIED ANTIARRHYTHMIC [Concomitant]

REACTIONS (4)
  - Multiple sclerosis relapse [Not Recovered/Not Resolved]
  - Paralysis [Not Recovered/Not Resolved]
  - Hyperaesthesia [Not Recovered/Not Resolved]
  - Motor dysfunction [Not Recovered/Not Resolved]
